FAERS Safety Report 4618666-X (Version None)
Quarter: 2005Q2

REPORT INFORMATION
  Report Type: 
  Country: None (occurrence: None)
  Receive Date: 20050311
  Receipt Date: 20041108
  Transmission Date: 20051028
  Serious: No
  Sender: FDA-Public Use
  Company Number: 2004-BP-09744BP

PATIENT
  Age: 77 Year
  Sex: Female

DRUGS (7)
  1. SPIRIVA [Suspect]
     Indication: CHRONIC OBSTRUCTIVE PULMONARY DISEASE
     Dosage: 18 MCG (18 MCG), IH
     Route: 055
     Dates: start: 20040630
  2. SPIRIVA [Suspect]
  3. ADVAIR DISKUS 100/50 [Concomitant]
  4. ATROVENT [Concomitant]
  5. OXYGEN (OXYGEN) [Concomitant]
  6. FUROSEMIDE (FUROSEMIDE) [Concomitant]
  7. POTASSIUM SUPPLEMENT (POTASSIUM) [Concomitant]

REACTIONS (2)
  - DRUG INEFFECTIVE [None]
  - PULMONARY CONGESTION [None]
